FAERS Safety Report 4920748-X (Version None)
Quarter: 2006Q1

REPORT INFORMATION
  Report Type: 
  Country: None (occurrence: None)
  Receive Date: 20060223
  Receipt Date: 20060216
  Transmission Date: 20060701
  Serious: Yes (Other)
  Sender: FDA-Public Use
  Company Number: US-ABBOTT-06P-163-0325252-00

PATIENT
  Sex: Female
  Weight: 72.64 kg

DRUGS (8)
  1. SYNTHROID [Suspect]
     Indication: GOITRE
     Dates: start: 19910101
  2. SYNTHROID [Suspect]
     Indication: DRUG USE FOR UNKNOWN INDICATION
     Route: 048
     Dates: start: 20040101
  3. SYNTHROID [Suspect]
     Route: 048
  4. SYNTHROID [Suspect]
     Route: 048
  5. SYNTHROID [Suspect]
     Route: 048
     Dates: start: 20050601, end: 20051201
  6. SYNTHROID [Suspect]
     Route: 048
     Dates: start: 20051201
  7. CITRACAL + D [Concomitant]
     Indication: MINERAL SUPPLEMENTATION
     Route: 048
  8. ACETAMINOPHEN [Concomitant]
     Indication: DRUG USE FOR UNKNOWN INDICATION

REACTIONS (10)
  - BLOOD THYROID STIMULATING HORMONE DECREASED [None]
  - BRONCHITIS [None]
  - DYSPEPSIA [None]
  - HEART RATE INCREASED [None]
  - OSTEOPOROSIS [None]
  - PHARYNGOLARYNGEAL PAIN [None]
  - SINUSITIS [None]
  - TENSION [None]
  - THYROID NEOPLASM [None]
  - WEIGHT DECREASED [None]
